FAERS Safety Report 9358829 (Version 2)
Quarter: 2013Q4

REPORT INFORMATION
  Report Type: Spontaneous
  Country: US (occurrence: US)
  Receive Date: 20130620
  Receipt Date: 20131213
  Transmission Date: 20140711
  Serious: Yes (Hospitalization)
  Sender: FDA-Public Use
  Company Number: US-B.I. PHARMACEUTICALS,INC./RIDGEFIELD-2013-BI-17209BP

PATIENT
  Age: 94 Year
  Sex: Female
  Weight: 58.97 kg

DRUGS (12)
  1. PRADAXA [Suspect]
     Indication: ANTICOAGULANT THERAPY
     Dosage: 150 MG
     Route: 048
     Dates: start: 20120118, end: 20120630
  2. PRADAXA [Suspect]
     Indication: ATRIAL FIBRILLATION
  3. AMIODARONE [Concomitant]
     Indication: ATRIAL FIBRILLATION
     Dosage: 200 MG
  4. DIGOXIN [Concomitant]
     Dosage: 0.125 MG
  5. CLONIDINE [Concomitant]
     Dosage: 0.4 MG
  6. METOPROLOL [Concomitant]
     Dosage: 150 MG
  7. FUROSEMIDE [Concomitant]
     Dosage: 40 MG
  8. ENALAPRIL [Concomitant]
     Dosage: 10 MG
  9. AMLODIPINE [Concomitant]
     Dosage: 10 MG
     Dates: start: 2007
  10. PRAVASTATIN [Concomitant]
     Dosage: 40 MG
  11. ASPIRIN [Concomitant]
     Dosage: 81 MG
     Dates: end: 20120630
  12. ATIVAN (LORAZEPAM) [Concomitant]
     Dosage: 0.5 MG
     Dates: start: 2003

REACTIONS (2)
  - Gastrointestinal haemorrhage [Unknown]
  - Anaemia [Unknown]
